FAERS Safety Report 24432329 (Version 2)
Quarter: 2024Q4

REPORT INFORMATION
  Report Type: Spontaneous
  Country: US (occurrence: US)
  Receive Date: 20241014
  Receipt Date: 20241020
  Transmission Date: 20250115
  Serious: Yes (Other)
  Sender: DR REDDYS
  Company Number: US-MLMSERVICE-20240930-PI212952-00034-1

PATIENT
  Age: 42 Year
  Sex: Male

DRUGS (18)
  1. AMIODARONE [Suspect]
     Active Substance: AMIODARONE
     Indication: Arrhythmic storm
  2. AMIODARONE [Suspect]
     Active Substance: AMIODARONE
     Indication: Ventricular fibrillation
  3. AMIODARONE [Suspect]
     Active Substance: AMIODARONE
     Indication: Ventricular tachycardia
  4. METOPROLOL [Suspect]
     Active Substance: METOPROLOL
     Indication: Ventricular tachycardia
  5. METOPROLOL [Suspect]
     Active Substance: METOPROLOL
     Indication: Ventricular fibrillation
  6. AMIODARONE [Suspect]
     Active Substance: AMIODARONE
     Indication: Arrhythmic storm
     Route: 042
  7. AMIODARONE [Suspect]
     Active Substance: AMIODARONE
     Indication: Ventricular fibrillation
  8. AMIODARONE [Suspect]
     Active Substance: AMIODARONE
     Indication: Ventricular tachycardia
  9. BENZNIDAZOLE [Concomitant]
     Active Substance: BENZNIDAZOLE
     Indication: Ventricular tachycardia
     Dosage: 100 MG ORALLY TWICE DAILY FOR 60 DAYS
     Route: 048
  10. BENZNIDAZOLE [Concomitant]
     Active Substance: BENZNIDAZOLE
     Indication: Cardiac aneurysm
  11. ESMOLOL [Concomitant]
     Active Substance: ESMOLOL HYDROCHLORIDE
     Indication: Ventricular fibrillation
     Route: 042
  12. ESMOLOL [Concomitant]
     Active Substance: ESMOLOL HYDROCHLORIDE
     Indication: Arrhythmic storm
  13. ESMOLOL [Concomitant]
     Active Substance: ESMOLOL HYDROCHLORIDE
     Indication: Ventricular tachycardia
  14. LIDOCAINE [Concomitant]
     Active Substance: LIDOCAINE
     Indication: Arrhythmic storm
     Route: 042
  15. LIDOCAINE [Concomitant]
     Active Substance: LIDOCAINE
     Indication: Ventricular tachycardia
  16. LIDOCAINE [Concomitant]
     Active Substance: LIDOCAINE
     Indication: Ventricular fibrillation
  17. MEXILETINE [Concomitant]
     Active Substance: MEXILETINE
     Indication: Ventricular tachycardia
  18. MEXILETINE [Concomitant]
     Active Substance: MEXILETINE
     Indication: Ventricular fibrillation

REACTIONS (3)
  - Drug ineffective [Unknown]
  - Hyperthyroidism [Unknown]
  - Product use in unapproved indication [Unknown]
